FAERS Safety Report 23345779 (Version 1)
Quarter: 2023Q4

REPORT INFORMATION
  Report Type: Spontaneous
  Country: US (occurrence: None)
  Receive Date: 20231227
  Receipt Date: 20231227
  Transmission Date: 20240110
  Serious: Yes (Other)
  Sender: FDA-Public Use
  Company Number: None

PATIENT
  Age: 60 Year
  Sex: Male

DRUGS (14)
  1. AMBRISENTAN [Suspect]
     Active Substance: AMBRISENTAN
     Indication: Pulmonary arterial hypertension
     Dosage: FREQUENCY : DAILY;?
     Route: 048
     Dates: start: 20210114
  2. SILDENAFIL [Concomitant]
  3. SELEXIPAG [Concomitant]
     Active Substance: SELEXIPAG
  4. FUROSEMIDE [Concomitant]
  5. BUMETANIDE [Concomitant]
     Active Substance: BUMETANIDE
  6. LOVASTATIN [Concomitant]
     Active Substance: LOVASTATIN
  7. LOVASTATIN [Concomitant]
     Active Substance: LOVASTATIN
  8. INSULIN GLARGINE [Concomitant]
  9. POTASSIUM CHLORIDE [Concomitant]
  10. GLIMEPIRIDE [Concomitant]
     Active Substance: GLIMEPIRIDE
  11. HYDROCHLOROTHIAZIDE [Concomitant]
  12. LITHIUM CARBONATE [Concomitant]
  13. OZEMPIC [Concomitant]
     Active Substance: SEMAGLUTIDE
  14. RISPERIDONE [Concomitant]

REACTIONS (5)
  - Swelling face [None]
  - Dysphagia [None]
  - Sialoadenitis [None]
  - Salivary gland disorder [None]
  - Obstruction [None]

NARRATIVE: CASE EVENT DATE: 20231221
